FAERS Safety Report 20134304 (Version 12)
Quarter: 2022Q3

REPORT INFORMATION
  Report Type: Spontaneous
  Country: PL (occurrence: PL)
  Receive Date: 20211201
  Receipt Date: 20220831
  Transmission Date: 20221027
  Serious: Yes (Hospitalization, Other)
  Sender: FDA-Public Use
  Company Number: PL-NOVARTISPH-NVSC2021PL262823

PATIENT
  Age: 31 Year
  Sex: Male

DRUGS (17)
  1. ESCITALOPRAM OXALATE [Interacting]
     Active Substance: ESCITALOPRAM OXALATE
     Indication: Depression
     Dosage: 10 MG, QD
     Route: 065
  2. AMOXICILLIN\CLAVULANIC ACID [Interacting]
     Active Substance: AMOXICILLIN\CLAVULANIC ACID
     Indication: Product used for unknown indication
     Dosage: 1000 MG, BID
     Route: 065
  3. METHYLPREDNISOLONE ACEPONATE [Interacting]
     Active Substance: METHYLPREDNISOLONE ACEPONATE
     Indication: Product used for unknown indication
     Dosage: 8 MG, BID
     Route: 065
  4. CLARITHROMYCIN [Interacting]
     Active Substance: CLARITHROMYCIN
     Indication: Cough
     Dosage: 500 MG, BID
     Route: 048
  5. OMEPRAZOLE [Interacting]
     Active Substance: OMEPRAZOLE
     Indication: Product used for unknown indication
     Dosage: 20 MG, BID
     Route: 065
  6. DEXTROMETHORPHAN HYDROBROMIDE [Interacting]
     Active Substance: DEXTROMETHORPHAN HYDROBROMIDE
     Indication: Antitussive therapy
     Dosage: 30 MG, TID
     Route: 048
  7. DEXTROMETHORPHAN HYDROBROMIDE [Interacting]
     Active Substance: DEXTROMETHORPHAN HYDROBROMIDE
     Indication: Cough
  8. CODEINE CAMPHORSULFONATE [Interacting]
     Active Substance: CODEINE CAMPHORSULFONATE
     Indication: Cough
     Dosage: 1 DF, TID
     Route: 065
  9. SULFOGAIACOL [Interacting]
     Active Substance: SULFOGAIACOL
     Indication: Cough
     Dosage: 1 DF, TID
     Route: 065
  10. AMLODIPINE [Interacting]
     Active Substance: AMLODIPINE BESYLATE
     Indication: Insomnia
     Dosage: 10 MG, QD
     Route: 065
  11. AMLODIPINE [Interacting]
     Active Substance: AMLODIPINE BESYLATE
     Indication: Affective disorder
  12. AMLODIPINE [Interacting]
     Active Substance: AMLODIPINE BESYLATE
     Indication: Hypertension
  13. PERINDOPRIL [Interacting]
     Active Substance: PERINDOPRIL
     Indication: Insomnia
     Dosage: 10 MG, QD
     Route: 065
  14. PERINDOPRIL [Interacting]
     Active Substance: PERINDOPRIL
     Indication: Affective disorder
  15. PERINDOPRIL [Interacting]
     Active Substance: PERINDOPRIL
     Indication: Hypertension
  16. VALSARTAN [Concomitant]
     Active Substance: VALSARTAN
     Indication: Hypertension
     Dosage: UNK
     Route: 065
  17. VORTIOXETINE [Concomitant]
     Active Substance: VORTIOXETINE
     Indication: Depression
     Dosage: UNK
     Route: 065

REACTIONS (14)
  - Cough [Recovered/Resolved]
  - Drug interaction [Recovered/Resolved]
  - Joint swelling [Recovered/Resolved]
  - Hyperhidrosis [Recovered/Resolved]
  - Condition aggravated [Unknown]
  - Constipation [Unknown]
  - Irritability [Unknown]
  - Serotonin syndrome [Recovered/Resolved]
  - Poor quality sleep [Unknown]
  - Sleep disorder [Unknown]
  - Drug level increased [Unknown]
  - Oedema peripheral [Unknown]
  - Contraindicated product administered [Unknown]
  - Labelled drug-drug interaction issue [Unknown]

NARRATIVE: CASE EVENT DATE: 20210101
